FAERS Safety Report 14842395 (Version 3)
Quarter: 2019Q1

REPORT INFORMATION
  Report Type: Spontaneous
  Country: US (occurrence: US)
  Receive Date: 20180503
  Receipt Date: 20190327
  Transmission Date: 20190417
  Serious: No
  Sender: FDA-Public Use
  Company Number: US-PFIZER INC-2018181545

PATIENT
  Age: 54 Year
  Sex: Female

DRUGS (1)
  1. XELJANZ XR [Suspect]
     Active Substance: TOFACITINIB CITRATE
     Indication: RHEUMATOID ARTHRITIS
     Dosage: 11 MG, 1X/DAY
     Route: 048
     Dates: start: 20171109

REACTIONS (6)
  - Peripheral swelling [Not Recovered/Not Resolved]
  - Skin disorder [Unknown]
  - Abdominal discomfort [Unknown]
  - Influenza [Unknown]
  - Acne [Unknown]
  - Rash [Unknown]
